FAERS Safety Report 24891029 (Version 1)
Quarter: 2025Q1

REPORT INFORMATION
  Report Type: Spontaneous
  Country: US (occurrence: None)
  Receive Date: 20250127
  Receipt Date: 20250127
  Transmission Date: 20250409
  Serious: Yes (unspecified)
  Sender: FDA-CTU
  Company Number: None

PATIENT
  Age: 59 Year
  Sex: Male
  Weight: 106.2 kg

DRUGS (16)
  1. SULFAMETHOXAZOLE\TRIMETHOPRIM [Suspect]
     Active Substance: SULFAMETHOXAZOLE\TRIMETHOPRIM
     Indication: Cellulitis
     Dosage: 1 TABLET TWICE A DAY ORAL
     Route: 048
     Dates: start: 20241204, end: 20241213
  2. Wixela Diskus [Concomitant]
  3. LINZESS [Concomitant]
     Active Substance: LINACLOTIDE
  4. XARELTO [Concomitant]
     Active Substance: RIVAROXABAN
  5. CLONAZEPAM [Concomitant]
     Active Substance: CLONAZEPAM
  6. CHLORPROMAZINE [Concomitant]
     Active Substance: CHLORPROMAZINE
  7. MONTELUKAST [Concomitant]
     Active Substance: MONTELUKAST
  8. IMIPRAMINE [Concomitant]
     Active Substance: IMIPRAMINE
  9. FOLIC ACID [Concomitant]
     Active Substance: FOLIC ACID
  10. Ka^Chava protein shake [Concomitant]
  11. Preservision-Areds 2 [Concomitant]
  12. VITAMIN D3 [Concomitant]
     Active Substance: CHOLECALCIFEROL
  13. Calm Magnesium Drink [Concomitant]
  14. Organic Raw Honey [Concomitant]
  15. HERBALS\HONEY [Concomitant]
     Active Substance: HERBALS\HONEY
  16. MELATONIN [Concomitant]
     Active Substance: MELATONIN

REACTIONS (4)
  - Pruritus [None]
  - Erythema [None]
  - Scratch [None]
  - Hypersensitivity [None]

NARRATIVE: CASE EVENT DATE: 20241204
